FAERS Safety Report 4627548-9 (Version None)
Quarter: 2005Q2

REPORT INFORMATION
  Report Type: 
  Country: None (occurrence: None)
  Receive Date: 20050405
  Receipt Date: 20050321
  Transmission Date: 20051028
  Serious: Yes (Death, Other)
  Sender: FDA-Public Use
  Company Number: 2005048449

PATIENT
  Age: 46 Year
  Sex: Female

DRUGS (1)
  1. NEURONTIN [Suspect]
     Indication: PAIN

REACTIONS (4)
  - AGGRESSION [None]
  - COMPLETED SUICIDE [None]
  - DRUG INEFFECTIVE [None]
  - SELF INJURIOUS BEHAVIOUR [None]
